FAERS Safety Report 22158029 (Version 2)
Quarter: 2024Q1

REPORT INFORMATION
  Report Type: Spontaneous
  Country: CA (occurrence: CA)
  Receive Date: 20230330
  Receipt Date: 20240301
  Transmission Date: 20240410
  Serious: Yes (Hospitalization, Other)
  Sender: FDA-Public Use
  Company Number: CA-ELI_LILLY_AND_COMPANY-CA202303016378

PATIENT
  Age: 53 Year
  Sex: Female

DRUGS (27)
  1. SOMATROPIN [Interacting]
     Active Substance: SOMATROPIN
     Indication: Product used for unknown indication
     Dosage: UNK, UNKNOWN
     Route: 065
  2. BUDESONIDE\FORMOTEROL FUMARATE [Interacting]
     Active Substance: BUDESONIDE\FORMOTEROL FUMARATE
     Indication: Product used for unknown indication
     Dosage: 200 UG, BID
     Route: 065
  3. BUDESONIDE\FORMOTEROL FUMARATE [Interacting]
     Active Substance: BUDESONIDE\FORMOTEROL FUMARATE
     Dosage: 6 UG, BID
     Route: 065
  4. BUDESONIDE\FORMOTEROL FUMARATE [Interacting]
     Active Substance: BUDESONIDE\FORMOTEROL FUMARATE
     Dosage: 1 DOSAGE FORM, BID
  5. ERGOCALCIFEROL [Interacting]
     Active Substance: ERGOCALCIFEROL
     Indication: Product used for unknown indication
     Dosage: 1000 INTERNATIONAL UNIT, DAILY
     Route: 048
  6. ESTRADIOL [Interacting]
     Active Substance: ESTRADIOL
     Indication: Product used for unknown indication
     Dosage: 50 UG, DAILY
     Route: 062
  7. ESTRADIOL [Interacting]
     Active Substance: ESTRADIOL
     Dosage: 1 DOSAGE FORM, EVERY 2 MONTHS
     Route: 062
  8. LACTOBACILLUS ACIDOPHILUS [Interacting]
     Active Substance: LACTOBACILLUS ACIDOPHILUS
     Indication: Product used for unknown indication
     Dosage: 1 DOSAGE FORM, U3 EVERY 1 DAYS
     Route: 048
  9. LINOLEIC ACID [Interacting]
     Active Substance: LINOLEIC ACID
     Indication: Product used for unknown indication
     Dosage: 1 DOSAGE FORM, TID
     Route: 048
  10. LORAZEPAM [Interacting]
     Active Substance: LORAZEPAM
     Indication: Product used for unknown indication
     Dosage: 1 MG, DAILY
     Route: 065
  11. DIMETHYL SULFONE [Interacting]
     Active Substance: DIMETHYL SULFONE
     Indication: Product used for unknown indication
     Dosage: 1000 MG, TID
     Route: 065
  12. PROGESTERONE [Interacting]
     Active Substance: PROGESTERONE
     Indication: Product used for unknown indication
     Dosage: 100 MG, DAILY
     Route: 065
  13. FISH OIL [Interacting]
     Active Substance: FISH OIL
     Indication: Product used for unknown indication
     Dosage: UNK, BID
     Route: 048
  14. VARENICLINE [Interacting]
     Active Substance: VARENICLINE
     Indication: Product used for unknown indication
     Dosage: 0.5 MG, DAILY
     Route: 065
  15. VARENICLINE [Interacting]
     Active Substance: VARENICLINE
     Dosage: 1 MG, BID
     Route: 065
  16. VENLAFAXINE [Interacting]
     Active Substance: VENLAFAXINE HYDROCHLORIDE
     Indication: Product used for unknown indication
     Dosage: 150 MG, DAILY
     Route: 065
  17. BIFIDOBACTERIUM LONGUM [Interacting]
     Active Substance: BIFIDOBACTERIUM LONGUM
     Indication: Product used for unknown indication
     Dosage: 1 DOSAGE FORM, 3 EVERY 1 DAYS
     Route: 048
  18. DOCONEXENT [Interacting]
     Active Substance: DOCONEXENT
     Indication: Product used for unknown indication
     Dosage: 120 MG, BID
     Route: 048
  19. ICOSAPENT [Interacting]
     Active Substance: ICOSAPENT
     Indication: Product used for unknown indication
     Dosage: 180 MG, BID
     Route: 048
  20. LACTOBACILLUS CASEI [Interacting]
     Active Substance: LACTOBACILLUS CASEI
     Indication: Product used for unknown indication
     Dosage: 1 DOSAGE FORM, 3 EVERY 1 DAYS
     Route: 048
  21. LACTOBACILLUS RHAMNOSUS [Interacting]
     Active Substance: LACTOBACILLUS RHAMNOSUS
     Indication: Product used for unknown indication
     Dosage: 1 DOSAGE FORM, 3 EVERY 1 DAYS
     Route: 048
  22. THIOCTIC ACID [Interacting]
     Active Substance: THIOCTIC ACID
     Indication: Product used for unknown indication
     Dosage: 3.75 MG, UNKNOWN
     Route: 065
  23. UBIDECARENONE [Interacting]
     Active Substance: UBIDECARENONE
     Indication: Product used for unknown indication
     Dosage: 3.75 MG, UNKNOWN
     Route: 065
  24. RETINOL [Interacting]
     Active Substance: RETINOL
     Indication: Product used for unknown indication
     Dosage: 188 MG, BID
     Route: 048
  25. VITAMIN C [Interacting]
     Active Substance: ASCORBIC ACID
     Indication: Product used for unknown indication
     Dosage: 15 MG, BID
     Route: 048
  26. VITAMIN E [Interacting]
     Active Substance: .ALPHA.-TOCOPHEROL
     Indication: Product used for unknown indication
     Dosage: 7.5 MG
     Route: 048
  27. VITAMIN D NOS [Suspect]
     Active Substance: VITAMIN D NOS
     Indication: Product used for unknown indication
     Dosage: 1000 INTERNATIONAL UNIT, DAILY
     Route: 048

REACTIONS (6)
  - Hepatotoxicity [Recovered/Resolved]
  - Drug interaction [Unknown]
  - Drug-induced liver injury [Recovered/Resolved]
  - Hepatic cirrhosis [Recovered/Resolved]
  - Hepatic encephalopathy [Recovered/Resolved]
  - Hepatic necrosis [Recovered/Resolved]
